FAERS Safety Report 12948939 (Version 2)
Quarter: 2016Q4

REPORT INFORMATION
  Report Type: Other
  Country: US (occurrence: US)
  Receive Date: 20161117
  Receipt Date: 20161208
  Transmission Date: 20170207
  Serious: Yes (Other)
  Sender: FDA-Public Use
  Company Number: US-SHIRE-US201616726

PATIENT
  Age: 15 Year
  Sex: Female
  Weight: 59 kg

DRUGS (1)
  1. VPRIV [Suspect]
     Active Substance: VELAGLUCERASE ALFA
     Indication: GAUCHER^S DISEASE
     Dosage: 9 VIALS, OTHER (BIMONTHLY)
     Route: 041
     Dates: start: 20160815, end: 20161118

REACTIONS (8)
  - Urinary retention [Recovering/Resolving]
  - Flushing [Unknown]
  - Abdominal pain [Unknown]
  - Lacrimation increased [Unknown]
  - Anaphylactic reaction [Recovered/Resolved]
  - Infusion related reaction [Unknown]
  - Dyspnoea [Unknown]
  - Laryngospasm [Unknown]

NARRATIVE: CASE EVENT DATE: 20161104
